FAERS Safety Report 11823671 (Version 1)
Quarter: 2015Q4

REPORT INFORMATION
  Report Type: Spontaneous
  Country: KR (occurrence: KR)
  Receive Date: 20151210
  Receipt Date: 20151210
  Transmission Date: 20160305
  Serious: Yes (Hospitalization)
  Sender: FDA-Public Use
  Company Number: KR-ACTELION-A-CH2015-128400

PATIENT
  Age: 64 Year
  Sex: Female
  Weight: 50 kg

DRUGS (10)
  1. TORSEM [Concomitant]
     Indication: PULMONARY HYPERTENSION
     Dosage: 5 MG, UNK
     Dates: start: 20150914
  2. TRACLEER [Suspect]
     Active Substance: BOSENTAN
     Indication: PULMONARY ARTERIAL HYPERTENSION
     Dosage: 250 MG, UNK
     Route: 048
     Dates: start: 20150720
  3. ALDACTONE [Concomitant]
     Active Substance: SPIRONOLACTONE
     Indication: PULMONARY HYPERTENSION
     Dosage: 250 MG, UNK
     Dates: start: 20150720
  4. ASPIRIN PROTECT [Concomitant]
     Active Substance: ASPIRIN
     Indication: THROMBOSIS
     Dosage: 100 MG, UNK
     Dates: start: 20151025
  5. BERAST [Concomitant]
     Indication: SYSTEMIC SCLEROSIS
     Dosage: 60 ?G, UNK
  6. MUCOSTA [Concomitant]
     Active Substance: REBAMIPIDE
     Indication: GASTRITIS
     Dosage: 100 MG, UNK
     Dates: start: 20111025
  7. TRACLEER [Suspect]
     Active Substance: BOSENTAN
     Dosage: 62.5 MG, UNK
     Route: 048
     Dates: start: 20150619, end: 20150719
  8. PREDNISOLONE. [Concomitant]
     Active Substance: PREDNISOLONE
     Indication: RAYNAUD^S PHENOMENON
     Dosage: UNK
     Dates: start: 20111025
  9. STILNOX [Concomitant]
     Active Substance: ZOLPIDEM TARTRATE
     Indication: INSOMNIA
     Dosage: 10 MG, UNK
     Dates: start: 20141111
  10. CHLORQUIN [Concomitant]
     Indication: RAYNAUD^S PHENOMENON
     Dosage: 200 MG, UNK
     Dates: start: 20130122

REACTIONS (4)
  - Thoracic operation [Unknown]
  - Dyspnoea [Recovered/Resolved]
  - Chest pain [Recovered/Resolved]
  - Pneumothorax [Recovered/Resolved]

NARRATIVE: CASE EVENT DATE: 20151112
